FAERS Safety Report 5471727-8 (Version None)
Quarter: 2007Q3

REPORT INFORMATION
  Report Type: 
  Country: None (occurrence: None)
  Receive Date: 20070928
  Receipt Date: 20070426
  Transmission Date: 20080115
  Serious: Yes (Other)
  Sender: FDA-Public Use
  Company Number: US-BRISTOL-MYERS SQUIBB COMPANY-13761598

PATIENT

DRUGS (1)
  1. DEFINITY [Suspect]

REACTIONS (2)
  - HYPOXIA [None]
  - TREMOR [None]
